FAERS Safety Report 7133146 (Version 3)
Quarter: 2012Q4

REPORT INFORMATION
  Report Type: 
  Country: CA (occurrence: CA)
  Receive Date: 20090928
  Receipt Date: 20121109
  Transmission Date: 20130627
  Serious: Yes (Hospitalization, Other)
  Sender: FDA-Public Use
  Company Number: PHMT2007CA00555

PATIENT
  Sex: Male

DRUGS (4)
  1. SANDOSTATIN LAR [Suspect]
     Indication: NEUROENDOCRINE CARCINOMA
     Dosage: 30 mg, once a month
     Dates: start: 20060526
  2. SANDOSTATIN LAR [Suspect]
     Dosage: 20 mg, UNK
     Dates: end: 20070514
  3. SANDOSTATIN LAR [Suspect]
  4. SANDOSTATIN LAR [Suspect]
     Dosage: 40 mg,once a month
     Route: 030
     Dates: start: 20060526

REACTIONS (20)
  - Hepatic cancer [Recovered/Resolved]
  - Ischaemia [Unknown]
  - Cholelithiasis [Unknown]
  - Malaise [Unknown]
  - Rhinitis [Unknown]
  - Muscle spasms [Not Recovered/Not Resolved]
  - Blood chromogranin A increased [Unknown]
  - 5-hydroxyindolacetic acid increased [Unknown]
  - Blood test abnormal [Unknown]
  - Nasal congestion [Unknown]
  - Cough [Unknown]
  - Hypersensitivity [Unknown]
  - Nasopharyngitis [Unknown]
  - Diarrhoea [Not Recovered/Not Resolved]
  - Eructation [Unknown]
  - Abdominal pain [Unknown]
  - Fatigue [Unknown]
  - Abdominal discomfort [Unknown]
  - Flatulence [Unknown]
  - Injection site pain [Unknown]
